FAERS Safety Report 5055888-0 (Version None)
Quarter: 2006Q3

REPORT INFORMATION
  Report Type: 
  Country: None (occurrence: None)
  Receive Date: 20060717
  Receipt Date: 20060701
  Transmission Date: 20061208
  Serious: Yes (Other)
  Sender: FDA-Public Use
  Company Number: 163-20785-06070276

PATIENT
  Sex: 0

DRUGS (2)
  1. THALOMID [Suspect]
     Indication: MYELODYSPLASTIC SYNDROME
     Dosage: SEE IMAGE
     Route: 048
     Dates: start: 20010630, end: 20020814
  2. THALOMID [Suspect]
     Indication: MYELODYSPLASTIC SYNDROME
     Dosage: SEE IMAGE
     Route: 048
     Dates: start: 20010727

REACTIONS (6)
  - CONSTIPATION [None]
  - DEPRESSED LEVEL OF CONSCIOUSNESS [None]
  - GRANULOCYTE COUNT DECREASED [None]
  - HAEMOLYTIC ANAEMIA [None]
  - NEUTROPHIL COUNT DECREASED [None]
  - PERIPHERAL SENSORY NEUROPATHY [None]
